FAERS Safety Report 16578243 (Version 1)
Quarter: 2019Q3

REPORT INFORMATION
  Report Type: Spontaneous
  Country: DE (occurrence: DE)
  Receive Date: 20190716
  Receipt Date: 20190716
  Transmission Date: 20191004
  Serious: Yes (Other)
  Sender: FDA-Public Use
  Company Number: DE-PFIZER INC-2019303436

PATIENT
  Age: 67 Year
  Sex: Female

DRUGS (2)
  1. ESOMEPRAZOLE MAGNESIUM. [Suspect]
     Active Substance: ESOMEPRAZOLE MAGNESIUM
     Indication: ODYNOPHAGIA
     Dosage: 80 MILLIGRAM, QD
     Route: 048
     Dates: start: 201904
  2. PANTOPRAZOLE [Suspect]
     Active Substance: PANTOPRAZOLE
     Indication: ODYNOPHAGIA
     Dosage: UNK
     Route: 048
     Dates: start: 201904, end: 201904

REACTIONS (4)
  - Gastritis [Not Recovered/Not Resolved]
  - Vomiting [Recovered/Resolved]
  - Off label use [Recovered/Resolved]
  - Gastrointestinal pain [Not Recovered/Not Resolved]

NARRATIVE: CASE EVENT DATE: 2019
